FAERS Safety Report 8911644 (Version 5)
Quarter: 2013Q1

REPORT INFORMATION
  Report Type: Report from Study
  Country: FI (occurrence: FI)
  Receive Date: 20121115
  Receipt Date: 20130110
  Transmission Date: 20140127
  Serious: Yes (Hospitalization)
  Sender: FDA-Public Use
  Company Number: FI-ROCHE-1152822

PATIENT
  Age: 52 Year
  Sex: Female

DRUGS (17)
  1. PERTUZUMAB [Suspect]
     Indication: BREAST CANCER
     Dosage: MOST RECENT DOSE PRIOR TO EVENT :25/OCT/2012
     Route: 065
     Dates: start: 20120802, end: 20121102
  2. PERTUZUMAB [Suspect]
     Route: 065
     Dates: start: 20121130
  3. TRASTUZUMAB [Suspect]
     Indication: BREAST CANCER
     Dosage: MOST RECENT DOSE PRIOR TO EVENT :25/OCT/2012
     Route: 065
     Dates: start: 20120802, end: 20121102
  4. TRASTUZUMAB [Suspect]
     Route: 065
     Dates: start: 20121130
  5. DOCETAXEL [Suspect]
     Indication: BREAST CANCER
     Dosage: MOST RECENT DOSE PRIOR TO SAE WAS TAKEN ON 25/OCT/2012
     Route: 065
     Dates: start: 20120802
  6. DOCETAXEL [Suspect]
     Route: 065
     Dates: start: 20121130
  7. ZOMETA [Concomitant]
     Indication: METASTASES TO BONE
     Route: 042
     Dates: start: 20120802
  8. CALCICHEW D3 [Concomitant]
     Indication: METASTASES TO BONE
     Dosage: 1000MG/20 MICROGRAM
     Route: 065
     Dates: start: 20120801
  9. BURANA [Concomitant]
     Indication: PAIN
     Dosage: 1200-1800 MG AS TOTAL DAILY DOSE
     Route: 065
     Dates: start: 20120713
  10. SOMAC (FINLAND) [Concomitant]
     Indication: PROPHYLAXIS
     Route: 065
     Dates: start: 20120801
  11. SOMAC (FINLAND) [Concomitant]
     Route: 048
     Dates: start: 20121110
  12. NEULASTA [Concomitant]
     Indication: PROPHYLAXIS
     Route: 058
     Dates: start: 20120803
  13. PANDOL [Concomitant]
     Indication: PROPHYLAXIS
     Route: 048
     Dates: start: 20120802
  14. ZYRTEC [Concomitant]
     Indication: HYPERSENSITIVITY
     Dosage: BEFORE INFUSION
     Route: 048
     Dates: start: 20120802
  15. DEXAMETHASON [Concomitant]
     Indication: NAUSEA
     Route: 065
     Dates: start: 20120801
  16. DEXAMETHASON [Concomitant]
     Indication: HYPERSENSITIVITY
  17. IMOCUR [Concomitant]
     Indication: DIARRHOEA
     Route: 065
     Dates: start: 20120802

REACTIONS (2)
  - Erysipelas [Recovered/Resolved]
  - Pneumonia [Recovered/Resolved]
